FAERS Safety Report 22367004 (Version 2)
Quarter: 2023Q4

REPORT INFORMATION
  Report Type: Spontaneous
  Country: FR (occurrence: FR)
  Receive Date: 20230525
  Receipt Date: 20231103
  Transmission Date: 20240110
  Serious: Yes (Hospitalization, Other)
  Sender: FDA-Public Use
  Company Number: None

PATIENT
  Age: 70 Year
  Sex: Male
  Weight: 71.4 kg

DRUGS (2)
  1. KEYTRUDA [Suspect]
     Active Substance: PEMBROLIZUMAB
     Indication: Renal cancer metastatic
     Dosage: 200 MILLIGRAM, Q3W
     Route: 042
     Dates: start: 20230317, end: 20230502
  2. LENVATINIB MESYLATE [Suspect]
     Active Substance: LENVATINIB MESYLATE
     Indication: Renal cancer metastatic
     Dosage: 14MG/DAY WITH  7 DAY INTERRUPTION BETWEEN 11-APR-2023 AND 18-APR-2023
     Route: 048
     Dates: start: 20230401, end: 20230502

REACTIONS (2)
  - Renal failure [Recovering/Resolving]
  - Proteinuria [Recovering/Resolving]

NARRATIVE: CASE EVENT DATE: 20230417
